FAERS Safety Report 14924131 (Version 15)
Quarter: 2018Q4

REPORT INFORMATION
  Report Type: Spontaneous
  Country: CA (occurrence: CA)
  Receive Date: 20180522
  Receipt Date: 20181218
  Transmission Date: 20190204
  Serious: Yes (Hospitalization, Other)
  Sender: FDA-Public Use
  Company Number: CA-CELLTRION INC.-2018CA019878

PATIENT

DRUGS (37)
  1. INFLECTRA [Suspect]
     Active Substance: INFLIXIMAB-DYYB
     Dosage: 600 MG, CYCLIC(EVERY 4 WEEKS); INTRAVENOUS
     Route: 042
     Dates: start: 20181001
  2. PREDNISONE. [Concomitant]
     Active Substance: PREDNISONE
     Dosage: 40 MG, DAILY TAPERING DOSE
  3. METHOTREXATE. [Concomitant]
     Active Substance: METHOTREXATE
     Dosage: UNK
     Dates: start: 201804
  4. FOLIC ACID. [Concomitant]
     Active Substance: FOLIC ACID
     Dosage: UNK
  5. TRAMACET [Concomitant]
     Active Substance: ACETAMINOPHEN\TRAMADOL
     Dosage: UNK
  6. MEZAVANT [Concomitant]
     Active Substance: MESALAMINE
     Dosage: UNK
     Dates: start: 201708
  7. METRONIDAZOLE. [Concomitant]
     Active Substance: METRONIDAZOLE
     Dosage: UNK
  8. FENTANYL. [Concomitant]
     Active Substance: FENTANYL
  9. MIDAZOLAM [Concomitant]
     Active Substance: MIDAZOLAM HYDROCHLORIDE
     Dosage: UNK
     Dates: start: 20180622, end: 20180622
  10. INFLECTRA [Suspect]
     Active Substance: INFLIXIMAB-DYYB
     Dosage: 300 MG CYCLIC EVERY 0,2,6 WEEKS THEN EVERY 8 WEEKS
     Route: 042
     Dates: start: 20180517, end: 20180517
  11. INFLECTRA [Suspect]
     Active Substance: INFLIXIMAB-DYYB
     Dosage: 5 MG/KG, UNK
     Dates: start: 20180717
  12. CIPROFLOXACIN. [Concomitant]
     Active Substance: CIPROFLOXACIN
     Dosage: UNK
  13. DALTEPARIN [Concomitant]
     Active Substance: DALTEPARIN
     Dosage: UNK
  14. ZOFRAN [Concomitant]
     Active Substance: ONDANSETRON HYDROCHLORIDE
     Dosage: UNK
  15. 5-ASA [Concomitant]
     Active Substance: MESALAMINE
     Dosage: UNK
     Dates: start: 201704
  16. GRAVOL [Concomitant]
     Active Substance: DIMENHYDRINATE
  17. ONDANSETRON [Concomitant]
     Active Substance: ONDANSETRON
  18. INFLECTRA [Suspect]
     Active Substance: INFLIXIMAB-DYYB
     Dosage: UNK
     Route: 042
     Dates: start: 20180628
  19. INFLECTRA [Suspect]
     Active Substance: INFLIXIMAB-DYYB
     Dosage: 600 MG, CYCLIC(EVERY 4 WEEKS); INTRAVENOUS
     Route: 042
     Dates: start: 20180826
  20. BUDESONIDE. [Concomitant]
     Active Substance: BUDESONIDE
  21. VENOFER [Concomitant]
     Active Substance: IRON SUCROSE
  22. VITAMIN D                          /00107901/ [Concomitant]
     Active Substance: ERGOCALCIFEROL
     Dosage: UNK
  23. INFLECTRA [Suspect]
     Active Substance: INFLIXIMAB-DYYB
     Dosage: 5 MG/KG, EVERY 4 WEEKS
     Dates: start: 201807
  24. CALCIUM CARBONATE. [Concomitant]
     Active Substance: CALCIUM CARBONATE
     Dosage: UNK
  25. METHYLPREDNISOLONE. [Concomitant]
     Active Substance: METHYLPREDNISOLONE
     Dosage: UNK
  26. SLOW-K [Concomitant]
     Active Substance: POTASSIUM CHLORIDE
     Dosage: UNK
  27. BUSCOPAN [Concomitant]
     Active Substance: BUTYLSCOPOLAMINE BROMIDE
  28. SALOFALK                           /00000301/ [Concomitant]
     Active Substance: MESALAMINE
     Route: 054
  29. MORPHINE [Concomitant]
     Active Substance: MORPHINE
  30. AMITRIPTYLINE [Concomitant]
     Active Substance: AMITRIPTYLINE
     Dosage: UNK
     Dates: start: 201804
  31. HYDROMORPHONE [Concomitant]
     Active Substance: HYDROMORPHONE
  32. INFLECTRA [Suspect]
     Active Substance: INFLIXIMAB-DYYB
     Indication: COLITIS ULCERATIVE
     Dosage: 9 MG/KG (500 MG), SINGLE, FIRST DOSE
     Route: 042
     Dates: start: 20180402, end: 20180402
  33. INFLECTRA [Suspect]
     Active Substance: INFLIXIMAB-DYYB
     Dosage: 300 MG CYCLIC EVERY 0,2,6 WEEKS THEN EVERY 8 WEEKS
     Route: 042
     Dates: start: 20180417, end: 20180517
  34. INFLECTRA [Suspect]
     Active Substance: INFLIXIMAB-DYYB
     Dosage: 300 MG, EVERY 2, 6 WEEKS THEN EVERY 8 WEEKS
     Route: 042
     Dates: start: 20180728, end: 20180728
  35. PANTOPRAZOLE [Concomitant]
     Active Substance: PANTOPRAZOLE
     Dosage: UNK
  36. CORTENEMA [Concomitant]
     Active Substance: HYDROCORTISONE
     Dosage: UNK
  37. CODEINE [Concomitant]
     Active Substance: CODEINE

REACTIONS (27)
  - Drug level below therapeutic [Unknown]
  - Myalgia [Unknown]
  - Thrombophlebitis superficial [Unknown]
  - Appendix disorder [Unknown]
  - Weight increased [Unknown]
  - Body temperature increased [Unknown]
  - Fatigue [Unknown]
  - Feeling cold [Unknown]
  - Heart rate irregular [Unknown]
  - Drug dependence [Unknown]
  - Drug effect incomplete [Not Recovered/Not Resolved]
  - Administration site injury [Unknown]
  - Condition aggravated [Not Recovered/Not Resolved]
  - Headache [Unknown]
  - Appendicitis [Recovering/Resolving]
  - Pyrexia [Recovered/Resolved]
  - Intercepted product dispensing error [Unknown]
  - Incorrect dose administered [Recovered/Resolved]
  - Product use issue [Unknown]
  - Blood pressure decreased [Unknown]
  - Pain [Recovering/Resolving]
  - Heart rate increased [Unknown]
  - C-reactive protein increased [Unknown]
  - Stenotrophomonas infection [Unknown]
  - Pseudomonas infection [Unknown]
  - Candida infection [Unknown]
  - Pyrexia [Not Recovered/Not Resolved]

NARRATIVE: CASE EVENT DATE: 2018
